FAERS Safety Report 12869382 (Version 4)
Quarter: 2017Q1

REPORT INFORMATION
  Report Type: Report from Study
  Country: PL (occurrence: PL)
  Receive Date: 20161021
  Receipt Date: 20170109
  Transmission Date: 20170428
  Serious: Yes (Hospitalization, Other)
  Sender: FDA-Public Use
  Company Number: PHHY2016PL141908

PATIENT
  Age: 67 Year
  Sex: Male

DRUGS (10)
  1. AGREGEX [Concomitant]
     Active Substance: CLOPIDOGREL BISULFATE
     Indication: PRODUCT USED FOR UNKNOWN INDICATION
     Dosage: FOR 12 MONTHS
     Route: 065
  2. TERTENS-AM [Concomitant]
     Indication: PRODUCT USED FOR UNKNOWN INDICATION
     Dosage: 1 X1 AT NOON
     Route: 065
     Dates: start: 20161013
  3. MOLSIDOMINA [Concomitant]
     Active Substance: MOLSIDOMINE
     Indication: PRODUCT USED FOR UNKNOWN INDICATION
     Dosage: 3X4 MG
     Route: 065
     Dates: start: 20161013
  4. TASIGNA [Suspect]
     Active Substance: NILOTINIB
     Indication: CHRONIC MYELOID LEUKAEMIA
     Dosage: 400 MG, BID
     Route: 065
     Dates: start: 2013
  5. NEBILET [Concomitant]
     Active Substance: NEBIVOLOL
     Indication: PRODUCT USED FOR UNKNOWN INDICATION
     Dosage: 5 MG, 1X1
     Route: 065
  6. CO PRESTARIUM [Concomitant]
     Indication: PRODUCT USED FOR UNKNOWN INDICATION
     Dosage: 1 DF, IN MORNING
     Route: 065
  7. SUVARDIO [Concomitant]
     Active Substance: ROSUVASTATIN CALCIUM
     Indication: PRODUCT USED FOR UNKNOWN INDICATION
     Dosage: 10 MG, 1X1
     Route: 065
     Dates: start: 20161013
  8. ACARD [Concomitant]
     Active Substance: ASPIRIN
     Indication: PRODUCT USED FOR UNKNOWN INDICATION
     Dosage: 75 MG, 1X1
     Route: 065
     Dates: start: 20161013
  9. PLAVIX [Concomitant]
     Active Substance: CLOPIDOGREL BISULFATE
     Indication: PRODUCT USED FOR UNKNOWN INDICATION
     Dosage: 75 MG, 1X1 FOR MINIMUM 6 MONTHS
     Route: 065
  10. NITROMINT [Concomitant]
     Indication: PRODUCT USED FOR UNKNOWN INDICATION
     Dosage: ON DEMAND 1
     Route: 060
     Dates: start: 20161013

REACTIONS (8)
  - Blood pressure systolic increased [Unknown]
  - Coronary artery disease [Unknown]
  - Myocardial ischaemia [Unknown]
  - Mean platelet volume decreased [Unknown]
  - Angina pectoris [Unknown]
  - Arteriosclerosis [Unknown]
  - Chest pain [Unknown]
  - Chest discomfort [Unknown]

NARRATIVE: CASE EVENT DATE: 20160901
